FAERS Safety Report 5153334-X (Version None)
Quarter: 2006Q4

REPORT INFORMATION
  Report Type: 
  Country: None (occurrence: None)
  Receive Date: 20061114
  Receipt Date: 20061026
  Transmission Date: 20070319
  Serious: Yes (Other)
  Sender: FDA-Public Use
  Company Number: 2006SP005314

PATIENT
  Sex: Male

DRUGS (1)
  1. CELESTAMINE TAB [Suspect]
     Indication: URTICARIA
     Dosage: PO
     Route: 048

REACTIONS (4)
  - CEREBRAL HAEMORRHAGE [None]
  - HEPATIC FUNCTION ABNORMAL [None]
  - HYPERGLYCAEMIA [None]
  - HYPERTENSION [None]
